FAERS Safety Report 21184407 (Version 1)
Quarter: 2022Q3

REPORT INFORMATION
  Report Type: Spontaneous
  Country: US (occurrence: None)
  Receive Date: 20220805
  Receipt Date: 20220805
  Transmission Date: 20221027
  Serious: Yes (Other)
  Sender: FDA-Public Use
  Company Number: None

PATIENT

DRUGS (21)
  1. INVEGA [Suspect]
     Active Substance: PALIPERIDONE
     Indication: Bipolar disorder
  2. INVEGA [Suspect]
     Active Substance: PALIPERIDONE
     Indication: Schizophreniform disorder
  3. INVEGA [Suspect]
     Active Substance: PALIPERIDONE
     Indication: Post-traumatic stress disorder
  4. INVEGA [Suspect]
     Active Substance: PALIPERIDONE
     Indication: Major depression
  5. INVEGA [Suspect]
     Active Substance: PALIPERIDONE
     Indication: Hypomania
  6. RISPERIDONE [Suspect]
     Active Substance: RISPERIDONE
  7. BUSPIRONE [Suspect]
     Active Substance: BUSPIRONE HYDROCHLORIDE
  8. GEODON [Suspect]
     Active Substance: ZIPRASIDONE HYDROCHLORIDE\ZIPRASIDONE MESYLATE
  9. LAMICTAL [Suspect]
     Active Substance: LAMOTRIGINE
  10. BUPROPION [Suspect]
     Active Substance: BUPROPION
  11. DIPHENHYDRAMINE [Suspect]
     Active Substance: DIPHENHYDRAMINE
  12. SUMATRIPTAN [Suspect]
     Active Substance: SUMATRIPTAN
  13. PHENAZOPYRIDINE [Suspect]
     Active Substance: PHENAZOPYRIDINE
  14. CIPROFLOXACIN [Suspect]
     Active Substance: CIPROFLOXACIN
  15. TRAZODONE [Suspect]
     Active Substance: TRAZODONE HYDROCHLORIDE
  16. BACLOFEN [Suspect]
     Active Substance: BACLOFEN
  17. ACETAMINOPHEN [Suspect]
     Active Substance: ACETAMINOPHEN
  18. SERTRALINE [Suspect]
     Active Substance: SERTRALINE HYDROCHLORIDE
  19. TRAMADOL [Suspect]
     Active Substance: TRAMADOL
  20. BENZTROPINE [Suspect]
     Active Substance: BENZTROPINE
  21. PERPHENAZINE [Suspect]
     Active Substance: PERPHENAZINE

REACTIONS (21)
  - Cyanosis [None]
  - Peripheral coldness [None]
  - Hypoaesthesia [None]
  - Neck pain [None]
  - Odynophagia [None]
  - Melanocytic naevus [None]
  - Pruritus [None]
  - Urticaria [None]
  - Drooling [None]
  - Dysarthria [None]
  - Nervousness [None]
  - Urinary incontinence [None]
  - Gait disturbance [None]
  - Excessive eye blinking [None]
  - Lymphadenopathy [None]
  - Loss of personal independence in daily activities [None]
  - Palpitations [None]
  - Blood pressure fluctuation [None]
  - Breast necrosis [None]
  - Swelling [None]
  - Peripheral swelling [None]
